FAERS Safety Report 8109952-X (Version None)
Quarter: 2012Q1

REPORT INFORMATION
  Report Type: 
  Country: None (occurrence: None)
  Receive Date: 20120202
  Receipt Date: 20120123
  Transmission Date: 20120608
  Serious: No
  Sender: FDA-Public Use
  Company Number: US-AMGEN-USASP2012004655

PATIENT
  Age: 30 Year
  Sex: Male

DRUGS (1)
  1. ENBREL [Suspect]
     Indication: RHEUMATOID ARTHRITIS
     Dosage: 50 MG, QWK
     Dates: start: 20111121

REACTIONS (6)
  - INJECTION SITE MASS [None]
  - RHINORRHOEA [None]
  - COUGH [None]
  - HEADACHE [None]
  - SINUSITIS [None]
  - OROPHARYNGEAL PAIN [None]
